FAERS Safety Report 24280098 (Version 3)
Quarter: 2025Q1

REPORT INFORMATION
  Report Type: Spontaneous
  Country: US (occurrence: US)
  Receive Date: 20240904
  Receipt Date: 20250129
  Transmission Date: 20250409
  Serious: No
  Sender: NOVARTIS
  Company Number: US-002147023-NVSC2024US177419

PATIENT
  Sex: Female

DRUGS (1)
  1. TAFINLAR [Suspect]
     Active Substance: DABRAFENIB MESYLATE
     Indication: Thyroid cancer
     Dosage: 75 MG, Q12H
     Route: 048
     Dates: start: 202201

REACTIONS (5)
  - Skin wrinkling [Unknown]
  - Weight decreased [Unknown]
  - Alopecia [Unknown]
  - Hot flush [Unknown]
  - Hunger [Unknown]
